FAERS Safety Report 25483639 (Version 1)
Quarter: 2025Q2

REPORT INFORMATION
  Report Type: Spontaneous
  Country: US (occurrence: US)
  Receive Date: 20250626
  Receipt Date: 20250626
  Transmission Date: 20250716
  Serious: Yes (Hospitalization, Other)
  Sender: AMGEN
  Company Number: US-AMGEN-USASP2025124166

PATIENT
  Age: 58 Year
  Sex: Female

DRUGS (37)
  1. TEPEZZA [Suspect]
     Active Substance: TEPROTUMUMAB-TRBW
     Indication: Endocrine ophthalmopathy
     Route: 040
     Dates: start: 202107
  2. TEPEZZA [Suspect]
     Active Substance: TEPROTUMUMAB-TRBW
     Route: 040
     Dates: start: 202208
  3. TEPEZZA [Suspect]
     Active Substance: TEPROTUMUMAB-TRBW
     Route: 040
     Dates: start: 20220701
  4. TEPEZZA [Suspect]
     Active Substance: TEPROTUMUMAB-TRBW
     Route: 040
     Dates: start: 20220812
  5. TEPEZZA [Suspect]
     Active Substance: TEPROTUMUMAB-TRBW
     Route: 040
     Dates: start: 20220902
  6. TEPEZZA [Suspect]
     Active Substance: TEPROTUMUMAB-TRBW
     Route: 040
     Dates: start: 20220729
  7. PREDNISONE [Suspect]
     Active Substance: PREDNISONE
     Indication: Hyperglycaemia
     Route: 048
     Dates: start: 20201201
  8. PREDNISONE [Suspect]
     Active Substance: PREDNISONE
     Indication: Endocrine ophthalmopathy
  9. KETOROLAC [Concomitant]
     Active Substance: KETOROLAC TROMETHAMINE
     Indication: Pain
     Dosage: 10 MILLIGRAM, Q6H
     Route: 048
  10. DUONEB [Concomitant]
     Active Substance: ALBUTEROL SULFATE\IPRATROPIUM BROMIDE
     Dosage: 3 MILLILITER, QID
  11. TORADOL [Concomitant]
     Active Substance: KETOROLAC TROMETHAMINE
     Dosage: 30 MILLIGRAM, Q6H
     Route: 040
  12. TORADOL [Concomitant]
     Active Substance: KETOROLAC TROMETHAMINE
     Dosage: 10 MILLIGRAM, Q6H
     Route: 040
  13. ATROPINE [Concomitant]
     Active Substance: ATROPINE
  14. ACETAMINOPHEN AND CODEINE [Concomitant]
     Active Substance: ACETAMINOPHEN\CODEINE PHOSPHATE
     Indication: Pain
     Dosage: 330 MILLIGRAM, Q6H
     Route: 048
  15. LIORESAL [Concomitant]
     Active Substance: BACLOFEN
     Dosage: 5 MILLIGRAM, TID
     Route: 048
  16. MITIGARE [Concomitant]
     Active Substance: COLCHICINE
     Dosage: 0.6 MILLIGRAM, BID
     Route: 048
  17. ESIDRIX [Concomitant]
     Active Substance: HYDROCHLOROTHIAZIDE
     Dosage: 12.5 MILLIGRAM, QD
     Route: 048
  18. TAPAZOLE [Concomitant]
     Active Substance: METHIMAZOLE
     Dosage: 20 MILLIGRAM, BID
     Route: 048
  19. PRILOSEC [Concomitant]
     Active Substance: OMEPRAZOLE MAGNESIUM
     Dosage: 40 MILLIGRAM, QD (MORNING)
     Route: 048
  20. ISOVUE [Concomitant]
     Active Substance: IOPAMIDOL
     Route: 065
  21. AUGMENTIN [Concomitant]
     Active Substance: AMOXICILLIN\CLAVULANATE POTASSIUM
     Dosage: 1000 MILLIGRAM, BID (875-125 MG)
     Route: 065
  22. GLUCOPHAGE XR [Concomitant]
     Active Substance: METFORMIN HYDROCHLORIDE
     Route: 048
     Dates: start: 20220516
  23. ROBAXIN [Concomitant]
     Active Substance: METHOCARBAMOL
     Indication: Muscle spasms
     Dosage: 500 MILLIGRAM, BID
     Route: 048
  24. XALATAN [Concomitant]
     Active Substance: LATANOPROST
     Indication: Borderline glaucoma
     Route: 065
  25. VITAMIN D2 [Concomitant]
     Active Substance: ERGOCALCIFEROL
     Dosage: 1250 MICROGRAM, QWK
     Route: 048
  26. VALIUM [Concomitant]
     Active Substance: DIAZEPAM
  27. TENORMIN [Concomitant]
     Active Substance: ATENOLOL
     Indication: Graves^ disease
     Dosage: 25 MILLIGRAM, QD
     Route: 048
  28. VAZALORE [Concomitant]
     Active Substance: ASPIRIN
     Route: 048
  29. Liquid e z paque [Concomitant]
  30. E z gas ii [Concomitant]
     Route: 048
  31. E-Z-HD [Concomitant]
     Active Substance: BARIUM SULFATE
     Route: 048
  32. COLCRYS [Concomitant]
     Active Substance: COLCHICINE
     Route: 048
  33. ADVAIR HFA [Concomitant]
     Active Substance: FLUTICASONE PROPIONATE\SALMETEROL XINAFOATE
     Dosage: UNK UNK, QD
  34. MOTRIN IB [Concomitant]
     Active Substance: IBUPROFEN
     Dosage: UNK UNK, Q6H
     Route: 048
  35. Melatin [Concomitant]
     Dosage: UNK UNK, QHS
     Route: 048
  36. MELOXICAM [Concomitant]
     Active Substance: MELOXICAM
     Route: 048
  37. Artificial tears [Concomitant]
     Route: 065

REACTIONS (31)
  - Mean cell volume decreased [Unknown]
  - Red cell distribution width decreased [Unknown]
  - Granulocyte count increased [Unknown]
  - Immature granulocyte count increased [Unknown]
  - Monocyte count increased [Unknown]
  - Eosinophil count decreased [Unknown]
  - Bradycardia [Unknown]
  - Glomerular filtration rate decreased [Unknown]
  - Mitral valve incompetence [Unknown]
  - Exophthalmos [Unknown]
  - Endocrine ophthalmopathy [Unknown]
  - Pericarditis [Not Recovered/Not Resolved]
  - Flank pain [Unknown]
  - Iris disorder [Unknown]
  - Obesity [Unknown]
  - Blood creatinine increased [Unknown]
  - Protein total increased [Unknown]
  - Blood albumin increased [Unknown]
  - Aspartate aminotransferase increased [Unknown]
  - Ventricular extrasystoles [Unknown]
  - Peripheral arterial occlusive disease [Unknown]
  - Type V hyperlipidaemia [Unknown]
  - Dry eye [Unknown]
  - Nausea [Unknown]
  - Stress urinary incontinence [Unknown]
  - Pollakiuria [Unknown]
  - Diarrhoea [Unknown]
  - Vision blurred [Unknown]
  - Epistaxis [Unknown]
  - Prothrombin time prolonged [Unknown]
  - Reflux laryngitis [Unknown]

NARRATIVE: CASE EVENT DATE: 20210415
